FAERS Safety Report 20336195 (Version 1)
Quarter: 2022Q1

REPORT INFORMATION
  Report Type: Spontaneous
  Country: US (occurrence: None)
  Receive Date: 20220114
  Receipt Date: 20220114
  Transmission Date: 20220423
  Serious: Yes (Other)
  Sender: FDA-Public Use
  Company Number: None

PATIENT
  Age: 54 Year
  Sex: Male
  Weight: 97.8 kg

DRUGS (1)
  1. BARICITINIB [Suspect]
     Active Substance: BARICITINIB
     Indication: COVID-19 treatment
     Dosage: FREQUENCY : DAILY;?
     Route: 048
     Dates: start: 20220108, end: 20220112

REACTIONS (3)
  - Pulmonary thrombosis [None]
  - Pulmonary embolism [None]
  - Infusion related reaction [None]

NARRATIVE: CASE EVENT DATE: 20220112
